FAERS Safety Report 15537307 (Version 1)
Quarter: 2018Q4

REPORT INFORMATION
  Report Type: Spontaneous
  Country: US (occurrence: US)
  Receive Date: 20181022
  Receipt Date: 20181022
  Transmission Date: 20190205
  Serious: Yes (Other)
  Sender: FDA-Public Use
  Company Number: None

PATIENT
  Age: 51 Year
  Sex: Female
  Weight: 65.25 kg

DRUGS (1)
  1. AIMOVIG [Suspect]
     Active Substance: ERENUMAB-AOOE
     Indication: MIGRAINE
     Dosage: ?          QUANTITY:2 INJECTION(S);OTHER FREQUENCY:2 SHOTS MONTHLY;OTHER ROUTE:SELF INJECTION?
     Dates: start: 20180920, end: 20181021

REACTIONS (4)
  - Nausea [None]
  - Vomiting [None]
  - Migraine [None]
  - Dizziness [None]

NARRATIVE: CASE EVENT DATE: 20181021
